FAERS Safety Report 9922822 (Version 1)
Quarter: 2014Q1

REPORT INFORMATION
  Report Type: Spontaneous
  Country: DE (occurrence: DE)
  Receive Date: 20140225
  Receipt Date: 20140225
  Transmission Date: 20141002
  Serious: Yes (Congenital Anomaly, Other)
  Sender: FDA-Public Use
  Company Number: DE-TEVA-462455GER

PATIENT
  Age: 1 Day
  Sex: Male

DRUGS (3)
  1. ESCITALOPRAM [Suspect]
     Route: 064
  2. LAMOTRIGINE [Suspect]
     Route: 064
  3. FEMIBION SCHWANGERSCHAFT 1 [Concomitant]
     Route: 064

REACTIONS (4)
  - Hypospadias [Not Recovered/Not Resolved]
  - Premature baby [Recovering/Resolving]
  - Small for dates baby [Recovering/Resolving]
  - Motor developmental delay [Unknown]
